FAERS Safety Report 5378307-3 (Version None)
Quarter: 2007Q3

REPORT INFORMATION
  Report Type: 
  Country: None (occurrence: None)
  Receive Date: 20070705
  Receipt Date: 20070621
  Transmission Date: 20080115
  Serious: Yes (Hospitalization, Other)
  Sender: FDA-Public Use
  Company Number: CN-KINGPHARMUSA00001-K200700791

PATIENT

DRUGS (1)
  1. KETALAR [Suspect]
     Dates: start: 20060101

REACTIONS (11)
  - BLADDER DISORDER [None]
  - BLOOD ALKALINE PHOSPHATASE INCREASED [None]
  - CONTRACTED BLADDER [None]
  - DRUG ABUSER [None]
  - DYSURIA [None]
  - HAEMATURIA [None]
  - HYDRONEPHROSIS [None]
  - LIVER DISORDER [None]
  - MICTURITION URGENCY [None]
  - POLLAKIURIA [None]
  - URGE INCONTINENCE [None]
